FAERS Safety Report 4971098-7 (Version None)
Quarter: 2006Q1

REPORT INFORMATION
  Report Type: 
  Country: None (occurrence: None)
  Receive Date: 20060228
  Receipt Date: 20051205
  Transmission Date: 20060701
  Serious: No
  Sender: FDA-Public Use
  Company Number: 05P-163-0318679-00

PATIENT
  Age: 34 Year
  Sex: Female
  Weight: 72.5755 kg

DRUGS (9)
  1. MIVACRON [Suspect]
     Indication: NEUROMUSCULAR BLOCKADE
     Dosage: 2 MILLIGRAM/MILLILITERS, 7 MILLILITERS, ONCE, INTRAVENOUS
     Route: 042
     Dates: start: 20051205, end: 20051205
  2. MIDAZOLAM HYDROCHLORIDE [Concomitant]
  3. LIDOCAINE [Concomitant]
  4. PROPOFOL [Concomitant]
  5. NITROUS OXIDE W/ OXYGEN [Concomitant]
  6. SEVOFLURANE [Concomitant]
  7. AZATHIOPRINE [Concomitant]
  8. SYMBYAX [Concomitant]
  9. ZIPRASIDONE HCL [Concomitant]

REACTIONS (1)
  - NEUROMUSCULAR BLOCK PROLONGED [None]
